FAERS Safety Report 22333960 (Version 1)
Quarter: 2023Q2

REPORT INFORMATION
  Report Type: Spontaneous
  Country: US (occurrence: US)
  Receive Date: 20230517
  Receipt Date: 20230517
  Transmission Date: 20230721
  Serious: Yes (Death, Life-Threatening, Hospitalization, Other)
  Sender: FDA-Public Use
  Company Number: US-AMGEN-USASP2023081522

PATIENT
  Age: 75 Year
  Sex: Male

DRUGS (3)
  1. RITUXIMAB [Suspect]
     Active Substance: RITUXIMAB
     Indication: Mantle cell lymphoma
     Dosage: UNK
     Route: 065
  2. BENDAMUSTINE [Concomitant]
     Active Substance: BENDAMUSTINE
  3. CYTARABINE [Concomitant]
     Active Substance: CYTARABINE

REACTIONS (10)
  - Death [Fatal]
  - Adenovirus infection [Unknown]
  - Cystitis haemorrhagic [Unknown]
  - Serum ferritin increased [Unknown]
  - Fibrin D dimer increased [Unknown]
  - Hypertransaminasaemia [Unknown]
  - Ileus paralytic [Unknown]
  - Pneumocystis jirovecii pneumonia [Unknown]
  - Acute kidney injury [Unknown]
  - Acute respiratory distress syndrome [Unknown]
